FAERS Safety Report 9541494 (Version 1)
Quarter: 2013Q2

REPORT INFORMATION
  Report Type: Spontaneous
  Country: US (occurrence: None)
  Receive Date: 20130524
  Receipt Date: 20130524
  Transmission Date: 20140414
  Serious: Yes (Other)
  Sender: FDA-Public Use
  Company Number: PHEH2013US003191

PATIENT
  Age: 57 Year
  Sex: Male
  Weight: 56.7 kg

DRUGS (10)
  1. GILENYA [Suspect]
     Route: 048
  2. NEURONTIN (GABAPENTIN) CAPSULE, 0.5MG [Concomitant]
  3. FOCALIN (DEXMETHYLPHENIDATE HYDROCHLORIDE) [Concomitant]
  4. ENABLEX (DARIFENACIN HYDROBROMIDE) [Concomitant]
  5. BACLOFEN (BACLOFEN) [Concomitant]
  6. NEXIUM (AMOXICILLIN TRIHYDRATE, CLARITHROMYCIN, ESOMEPRAZOLE MAGNESIUM) [Concomitant]
  7. NORCO (HYDROCODONE BITARTRATE, CLARITHROMYCIN, ESOMEPRAZOLE MAGNESSIUM) [Concomitant]
  8. PROVIGIL (MODAFINIL) [Concomitant]
  9. VIT D (ERGOCALCIFEROL) [Concomitant]
  10. MULTI-VIT (VITAMINS NOS) [Concomitant]

REACTIONS (2)
  - Visual impairment [None]
  - Eye pain [None]
